FAERS Safety Report 9469109 (Version 1)
Quarter: 2013Q3

REPORT INFORMATION
  Report Type: Spontaneous
  Country: US (occurrence: US)
  Receive Date: 20130821
  Receipt Date: 20130821
  Transmission Date: 20140515
  Serious: Yes (Hospitalization)
  Sender: FDA-Public Use
  Company Number: US-PFIZER INC-2013238780

PATIENT
  Age: 69 Year
  Sex: Male
  Weight: 78.91 kg

DRUGS (2)
  1. CHANTIX [Suspect]
     Indication: SMOKING CESSATION THERAPY
     Dosage: 0.5 MG, 1X/DAY
     Dates: start: 20130801
  2. IBUPROFEN [Concomitant]
     Indication: RIB FRACTURE
     Dosage: 800 MG, 3X/DAY

REACTIONS (5)
  - Road traffic accident [Unknown]
  - Local swelling [Unknown]
  - Excoriation [Unknown]
  - Laceration [Unknown]
  - Laceration [Unknown]
